FAERS Safety Report 4756804-9 (Version None)
Quarter: 2005Q3

REPORT INFORMATION
  Report Type: 
  Country: None (occurrence: None)
  Receive Date: 20050830
  Receipt Date: 20050627
  Transmission Date: 20060218
  Serious: Yes (Other)
  Sender: FDA-Public Use
  Company Number: PHBS2005JP09369

PATIENT
  Age: 20 Year
  Sex: Female
  Weight: 67 kg

DRUGS (15)
  1. RIFAMPICIN [Interacting]
     Indication: TUBERCULOSIS
     Dosage: 25-450 MG/D
     Route: 048
     Dates: start: 20041231, end: 20050404
  2. PREDONINE [Concomitant]
     Indication: SYSTEMIC LUPUS ERYTHEMATOSUS
     Dosage: 17-90 MG/D
     Route: 048
     Dates: start: 20041228
  3. NEORAL [Suspect]
     Indication: SYSTEMIC LUPUS ERYTHEMATOSUS
     Dosage: 150 MG/D
     Route: 048
     Dates: start: 20040101, end: 20050301
  4. NEORAL [Suspect]
     Dosage: 300 MG/D
     Route: 048
     Dates: start: 20050302, end: 20050309
  5. NEORAL [Suspect]
     Dosage: 600 MG/D
     Route: 048
     Dates: start: 20050310, end: 20050323
  6. NEORAL [Suspect]
     Dosage: 400 MG/D
     Route: 048
     Dates: start: 20050324, end: 20050404
  7. NEORAL [Suspect]
     Dosage: 150 MG/D
     Route: 048
     Dates: start: 20050408, end: 20050520
  8. EBUTOL [Concomitant]
     Dosage: 750 MG/D
     Route: 048
     Dates: start: 20041231
  9. PYRAMIDE [Concomitant]
     Dosage: 1200 MG/D
     Route: 048
     Dates: start: 20041231, end: 20050331
  10. SOL-MELCORT [Concomitant]
     Dosage: 1000 MG/D
     Route: 042
     Dates: start: 20050405, end: 20050407
  11. ISCOTIN [Concomitant]
     Dosage: 300 MG/D
     Route: 048
     Dates: start: 20041228
  12. CRAVIT [Concomitant]
     Dosage: 300 G/D
     Route: 048
     Dates: start: 20041228
  13. BACTRIM [Concomitant]
     Dosage: 2 G/D
     Route: 048
     Dates: start: 20041229
  14. BONALON [Concomitant]
     Dosage: 5 MG/D
     Route: 048
     Dates: start: 20041228
  15. ALUMINO-NIPPAS CALCIUM [Concomitant]
     Dosage: 10 G/D
     Route: 048
     Dates: start: 20040501

REACTIONS (12)
  - AGRANULOCYTOSIS [None]
  - CHEST PAIN [None]
  - DRUG INTERACTION [None]
  - DRUG LEVEL DECREASED [None]
  - DYSPNOEA [None]
  - INTERSTITIAL LUNG DISEASE [None]
  - PAIN [None]
  - PERICARDIAL EFFUSION [None]
  - PERICARDITIS [None]
  - PYREXIA [None]
  - SYSTEMIC LUPUS ERYTHEMATOSUS [None]
  - THROMBOCYTOPENIA [None]
